FAERS Safety Report 5052598-0 (Version None)
Quarter: 2006Q3

REPORT INFORMATION
  Report Type: 
  Country: None (occurrence: None)
  Receive Date: 20060717
  Receipt Date: 20060707
  Transmission Date: 20061208
  Serious: Yes (Death)
  Sender: FDA-Public Use
  Company Number: IT-GLAXOSMITHKLINE-B0430310A

PATIENT
  Age: 64 Year
  Sex: Female

DRUGS (3)
  1. AUGMENTIN '125' [Suspect]
     Route: 048
     Dates: start: 20060629, end: 20060629
  2. ASPIRIN [Concomitant]
     Route: 048
  3. ZOFENOPRIL [Concomitant]
     Route: 048

REACTIONS (3)
  - ANAPHYLACTIC REACTION [None]
  - CIRCUMORAL OEDEMA [None]
  - DYSPNOEA [None]
